FAERS Safety Report 7564598-7 (Version None)
Quarter: 2011Q2

REPORT INFORMATION
  Report Type: 
  Country: None (occurrence: None)
  Receive Date: 20110622
  Receipt Date: 20100801
  Transmission Date: 20111010
  Serious: Yes (Other)
  Sender: FDA-Public Use
  Company Number: US-MYLANLABS-2010S1011269

PATIENT
  Age: 19 Year
  Sex: Male

DRUGS (7)
  1. DIVALPROEX SODIUM [Concomitant]
     Dosage: LAST DISPENSED 03-JUL-2010
     Route: 048
  2. CLOZAPINE [Suspect]
     Indication: PSYCHOTIC DISORDER
     Route: 048
     Dates: start: 20091118, end: 20100601
  3. LAMOTRIGINE [Concomitant]
     Dosage: LAST DISPENSED 01-JUL-2010
     Route: 048
  4. BUPROPION HCL [Concomitant]
     Dosage: LAST DISPENSED 22-MAR-2010
  5. DEPAKOTE [Suspect]
     Route: 048
     Dates: end: 20100701
  6. CLOZAPINE [Suspect]
     Route: 048
     Dates: start: 20100601
  7. SEROQUEL [Concomitant]
     Dosage: LAST DISPENSED 22-MAR-2010

REACTIONS (1)
  - GRANULOCYTOPENIA [None]
